FAERS Safety Report 21131414 (Version 2)
Quarter: 2022Q3

REPORT INFORMATION
  Report Type: Spontaneous
  Country: CA (occurrence: CA)
  Receive Date: 20220726
  Receipt Date: 20220729
  Transmission Date: 20221027
  Serious: Yes (Death, Other)
  Sender: FDA-Public Use
  Company Number: CA-JNJFOC-20220746209

PATIENT
  Age: 74 Year
  Sex: Female

DRUGS (1)
  1. RYBREVANT [Suspect]
     Active Substance: AMIVANTAMAB-VMJW
     Indication: Lung neoplasm malignant
     Dosage: TAKEN END OF FEBRUARY/BEGINNING OF MARCH 2022
     Route: 065

REACTIONS (5)
  - Death [Fatal]
  - Pulmonary oedema [Unknown]
  - Pneumonia [Unknown]
  - Anaphylactic shock [Unknown]
  - Pyrexia [Unknown]

NARRATIVE: CASE EVENT DATE: 20220306
